FAERS Safety Report 17533056 (Version 20)
Quarter: 2025Q4

REPORT INFORMATION
  Report Type: Report from Study
  Country: US (occurrence: US)
  Receive Date: 20200312
  Receipt Date: 20251230
  Transmission Date: 20260117
  Serious: Yes (Other)
  Sender: PFIZER
  Company Number: US-PFIZER INC-2019346330

PATIENT
  Age: 80 Year
  Sex: Female
  Weight: 66.68 kg

DRUGS (8)
  1. XELJANZ [Suspect]
     Active Substance: TOFACITINIB CITRATE
     Indication: Rheumatoid arthritis
     Dosage: 5 MG, 2X/DAY
     Route: 048
  2. XELJANZ [Suspect]
     Active Substance: TOFACITINIB CITRATE
     Dosage: 5 MG
     Route: 048
  3. ELIQUIS [Concomitant]
     Active Substance: APIXABAN
     Indication: Anticoagulant therapy
     Dosage: 2.5 MG, 2X/DAY
  4. OMEPRAZOLE [Concomitant]
     Active Substance: OMEPRAZOLE
     Indication: Barrett^s oesophagus
     Dosage: 40 MG, 1X/DAY
  5. CELEBREX [Concomitant]
     Active Substance: CELECOXIB
     Indication: Rheumatoid arthritis
     Dosage: 200 MG, 1X/DAY
  6. ATENOLOL [Concomitant]
     Active Substance: ATENOLOL
     Indication: Hypertension
     Dosage: 50 MG, 1X/DAY
  7. ATENOLOL [Concomitant]
     Active Substance: ATENOLOL
     Indication: Arrhythmia
  8. LYRICA [Concomitant]
     Active Substance: PREGABALIN
     Dosage: UNK

REACTIONS (21)
  - Cardiac arrest [Unknown]
  - Cataract [Recovered/Resolved]
  - Heart valve incompetence [Recovered/Resolved]
  - Arrhythmia [Unknown]
  - Condition aggravated [Unknown]
  - Tremor [Unknown]
  - Dental operation [Unknown]
  - Fall [Unknown]
  - Rotator cuff syndrome [Unknown]
  - Anaemia [Unknown]
  - Infection [Unknown]
  - COVID-19 [Unknown]
  - Muscle spasms [Unknown]
  - Upper respiratory tract infection [Recovered/Resolved]
  - Myalgia [Recovered/Resolved]
  - Neuralgia [Recovered/Resolved]
  - Hypoacusis [Unknown]
  - Pain [Unknown]
  - Sensitivity to weather change [Unknown]
  - Hand deformity [Unknown]
  - Back pain [Unknown]

NARRATIVE: CASE EVENT DATE: 20190720
